FAERS Safety Report 21550041 (Version 2)
Quarter: 2023Q4

REPORT INFORMATION
  Report Type: Report from Study
  Country: US (occurrence: US)
  Receive Date: 20221103
  Receipt Date: 20231129
  Transmission Date: 20240110
  Serious: Yes (Other)
  Sender: FDA-Public Use
  Company Number: US-MYLANLABS-2022M1120655

PATIENT
  Sex: Female

DRUGS (1)
  1. ACETAMINOPHEN [Suspect]
     Active Substance: ACETAMINOPHEN
     Indication: Symptomatic treatment
     Dosage: UNK, SUPRATHERAPEUTIC DOSES
     Route: 065

REACTIONS (3)
  - Hepatotoxicity [Recovering/Resolving]
  - Drug level above therapeutic [Recovering/Resolving]
  - Maternal exposure during pregnancy [Recovering/Resolving]
